FAERS Safety Report 5289498-7 (Version None)
Quarter: 2007Q2

REPORT INFORMATION
  Report Type: 
  Country: None (occurrence: None)
  Receive Date: 20070406
  Receipt Date: 20070323
  Transmission Date: 20071010
  Serious: Yes (Hospitalization)
  Sender: FDA-Public Use
  Company Number: PHEH2007US03497

PATIENT
  Age: 24 Year
  Sex: Female

DRUGS (1)
  1. CLOZARIL [Suspect]
     Indication: SCHIZOPHRENIA
     Dosage: 300 MG, BID
     Route: 048

REACTIONS (7)
  - DELUSION [None]
  - ENERGY INCREASED [None]
  - HALLUCINATION, VISUAL [None]
  - PARANOIA [None]
  - SOMNOLENCE [None]
  - SUICIDAL IDEATION [None]
  - VISUAL DISTURBANCE [None]
